FAERS Safety Report 7308511-6 (Version None)
Quarter: 2011Q1

REPORT INFORMATION
  Report Type: 
  Country: None (occurrence: None)
  Receive Date: 20110223
  Receipt Date: 20101227
  Transmission Date: 20110831
  Serious: Yes (Other)
  Sender: FDA-Public Use
  Company Number: US-BAYER-201023107NA

PATIENT
  Sex: Female
  Weight: 45 kg

DRUGS (25)
  1. AZITHROMYCIN [Concomitant]
  2. FLUOXETINE HCL [Concomitant]
  3. CIPROFLOXACIN HYDROCHLORIDE [Concomitant]
  4. BUSPIRON [BUSPIRONE HYDROCHLORIDE] [Concomitant]
  5. REGLAN [Concomitant]
  6. ZOLOFT [Concomitant]
  7. K-DUR [Concomitant]
  8. ANTIBIOTICS [Concomitant]
  9. PROMETHEGAN [Concomitant]
     Dosage: AS USED DOSE: SU
  10. UNCODEABLE ^UNCLASSIFIABLE^ [Concomitant]
  11. NSAID'S [Concomitant]
  12. SKELAXIN [Concomitant]
  13. PRILOSEC [Concomitant]
  14. YAZ [Suspect]
     Indication: CONTRACEPTION
     Route: 048
     Dates: start: 20070301, end: 20090501
  15. AMITRIPTYLINE HCL [Concomitant]
  16. PAROXETINE HCL [Concomitant]
  17. YASMIN [Suspect]
     Indication: CONTRACEPTION
     Dosage: REPORTED BY THE CONSUMER
     Route: 048
     Dates: start: 20030101, end: 20040101
  18. YASMIN [Suspect]
     Dosage: ACCORDING TO PHARMACY RECORDS
     Route: 048
     Dates: start: 20051206, end: 20080425
  19. ST. JOHNS WORT [Concomitant]
  20. HYOSCYAMINE SULFATE [Concomitant]
  21. YASMIN [Suspect]
     Dosage: ACCORDING TO PHARMACY RECORDS
     Route: 048
     Dates: start: 20051206, end: 20080425
  22. CEPHALEXIN [Concomitant]
  23. NEUTRA-PHOS [Concomitant]
  24. UNKNOWN DRUG [Concomitant]
     Indication: MIGRAINE
  25. PHENERGAN [Concomitant]
     Dosage: UNK
     Dates: start: 20061230

REACTIONS (9)
  - CHOLECYSTITIS CHRONIC [None]
  - DEPRESSION [None]
  - NAUSEA [None]
  - GALLBLADDER CHOLESTEROLOSIS [None]
  - ABDOMINAL PAIN UPPER [None]
  - ANXIETY [None]
  - BILIARY COLIC [None]
  - MIGRAINE [None]
  - DIARRHOEA [None]
